FAERS Safety Report 4502480-X (Version None)
Quarter: 2004Q4

REPORT INFORMATION
  Report Type: 
  Country: None (occurrence: None)
  Receive Date: 20041112
  Receipt Date: 20041108
  Transmission Date: 20050328
  Serious: Yes (Life-Threatening)
  Sender: FDA-Public Use
  Company Number: 2004-122058-ML

PATIENT
  Age: 38 Year
  Sex: Female

DRUGS (6)
  1. ROCURONIUM BROMIDE [Suspect]
     Indication: HYPOTONIA
     Dosage: 50 MG ONCE INTRAVENOUS (NOS)
     Route: 042
     Dates: start: 20021004
  2. RANITIDINE [Concomitant]
  3. TEMAZEPAM [Concomitant]
  4. MIDAZOLAM HCL [Concomitant]
  5. REMIFENTANIL [Concomitant]
  6. PROPOFOL [Concomitant]

REACTIONS (4)
  - BRONCHOSPASM [None]
  - HYPOTENSION [None]
  - PERIORBITAL OEDEMA [None]
  - SINUS TACHYCARDIA [None]
